FAERS Safety Report 13319674 (Version 2)
Quarter: 2017Q2

REPORT INFORMATION
  Report Type: Spontaneous
  Country: US (occurrence: US)
  Receive Date: 20170310
  Receipt Date: 20170411
  Transmission Date: 20170830
  Serious: No
  Sender: FDA-Public Use
  Company Number: US-BAYER-2017-045764

PATIENT
  Age: 73 Year
  Sex: Female
  Weight: 49 kg

DRUGS (16)
  1. COENZYME Q10 [Concomitant]
     Active Substance: UBIDECARENONE
  2. CHONDROITIN [Concomitant]
     Active Substance: CHONDROITIN
  3. MIRALAX [Suspect]
     Active Substance: POLYETHYLENE GLYCOL 3350
     Indication: GASTROINTESTINAL DISORDER
     Dosage: UNK
  4. MEMANTINE. [Concomitant]
     Active Substance: MEMANTINE
  5. CURCUMIN [Concomitant]
     Active Substance: CURCUMIN
  6. MSM [Concomitant]
     Active Substance: DIMETHYL SULFONE
  7. CYMBALTA [Concomitant]
     Active Substance: DULOXETINE HYDROCHLORIDE
  8. ALDACTONE A [Concomitant]
     Active Substance: SPIRONOLACTONE
  9. MIRALAX [Suspect]
     Active Substance: POLYETHYLENE GLYCOL 3350
     Indication: GASTROINTESTINAL DISORDER
     Dosage: 2 SCOOPS A DAY
     Route: 048
     Dates: start: 2013, end: 20170319
  10. FLECAINIDE [Concomitant]
     Active Substance: FLECAINIDE
  11. OMEGA 3 [Concomitant]
     Active Substance: OMEGA-3 FATTY ACIDS
  12. CALCIUM [Concomitant]
     Active Substance: CALCIUM
  13. GLUCOSAMINE [Concomitant]
     Active Substance: GLUCOSAMINE
  14. WARFARIN [Concomitant]
     Active Substance: WARFARIN
  15. MULTIVITAMIN [Concomitant]
     Active Substance: VITAMINS
  16. VITAMIN D3 [Concomitant]
     Active Substance: CHOLECALCIFEROL

REACTIONS (2)
  - Product use issue [Unknown]
  - Expired product administered [Unknown]
